FAERS Safety Report 8138882-2 (Version None)
Quarter: 2012Q1

REPORT INFORMATION
  Report Type: 
  Country: None (occurrence: None)
  Receive Date: 20120215
  Receipt Date: 20120205
  Transmission Date: 20120608
  Serious: Yes (Disabling)
  Sender: FDA-Public Use
  Company Number: US-BAYER-2012-012724

PATIENT
  Age: 31 Year
  Sex: Female
  Weight: 110 kg

DRUGS (3)
  1. VALIUM [Concomitant]
  2. CAMPHO-PHENIQUE ANTISEPTIC COLD SORE GEL WITH DA [Suspect]
     Indication: ORAL HERPES
     Dosage: UNK, ONCE
     Route: 061
     Dates: start: 20120203, end: 20120203
  3. HYDROCODONE [Concomitant]

REACTIONS (5)
  - VIITH NERVE PARALYSIS [None]
  - SWELLING FACE [None]
  - LIP DISORDER [None]
  - SPEECH DISORDER [None]
  - LIP SWELLING [None]
